FAERS Safety Report 25596786 (Version 1)
Quarter: 2025Q3

REPORT INFORMATION
  Report Type: Spontaneous
  Country: JP (occurrence: JP)
  Receive Date: 20250723
  Receipt Date: 20250723
  Transmission Date: 20251021
  Serious: Yes (Other)
  Sender: PFIZER
  Company Number: JP-PFIZER INC-PV202500084630

PATIENT
  Age: 57 Year
  Sex: Male

DRUGS (1)
  1. LINEZOLID [Suspect]
     Active Substance: LINEZOLID
     Indication: Staphylococcal osteomyelitis

REACTIONS (4)
  - Cholecystitis [Recovering/Resolving]
  - Dysphoria [Unknown]
  - Off label use [Unknown]
  - Drug effective for unapproved indication [Unknown]
